FAERS Safety Report 10286020 (Version 1)
Quarter: 2014Q3

REPORT INFORMATION
  Report Type: Spontaneous
  Country: US (occurrence: None)
  Receive Date: 20140703
  Receipt Date: 20140703
  Transmission Date: 20150326
  Serious: Yes (Other)
  Sender: FDA-Public Use
  Company Number: 2415183

PATIENT
  Age: 33 Year
  Sex: Male

DRUGS (5)
  1. MECHLORETHAMINE [Suspect]
     Active Substance: MECHLORETHAMINE
     Indication: HODGKIN^S DISEASE
  2. PROCARBAZINE [Suspect]
     Active Substance: PROCARBAZINE
     Indication: HODGKIN^S DISEASE
  3. VINCRISTINE SULFATE. [Suspect]
     Active Substance: VINCRISTINE SULFATE
     Indication: HODGKIN^S DISEASE
  4. THERAPEUTICS RADIOPHARMACEUTICALS [Suspect]
     Active Substance: UNSPECIFIED INGREDIENT
     Indication: HODGKIN^S DISEASE
  5. PREDNISONE. [Suspect]
     Active Substance: PREDNISONE
     Indication: HODGKIN^S DISEASE

REACTIONS (5)
  - Gastric polyps [None]
  - Rectal adenoma [None]
  - Large intestine polyp [None]
  - Colon adenoma [None]
  - Neoplasm [None]
